FAERS Safety Report 8915940 (Version 1)
Quarter: 2012Q4

REPORT INFORMATION
  Report Type: 
  Country: US (occurrence: US)
  Receive Date: 20121119
  Receipt Date: 20121119
  Transmission Date: 20130627
  Serious: No
  Sender: FDA-Public Use
  Company Number: US-PFIZER INC-2012288379

PATIENT
  Age: 85 Year
  Sex: Male
  Weight: 79.37 kg

DRUGS (3)
  1. LYRICA [Suspect]
     Indication: PAIN IN LEG
     Dosage: 150 mg, 3x/day
     Dates: start: 201208, end: 201209
  2. LYRICA [Suspect]
     Dosage: 150 mg, daily
     Dates: start: 201210, end: 2012
  3. WARFARIN SODIUM [Concomitant]
     Indication: ANTICOAGULANT THERAPY
     Dosage: 2 mg, daily

REACTIONS (2)
  - Joint swelling [Recovered/Resolved]
  - Oedema peripheral [Recovered/Resolved]
